FAERS Safety Report 7325824-2 (Version None)
Quarter: 2011Q1

REPORT INFORMATION
  Report Type: 
  Country: None (occurrence: None)
  Receive Date: 20110302
  Receipt Date: 20100624
  Transmission Date: 20110831
  Serious: Yes (Hospitalization, Other)
  Sender: FDA-Public Use
  Company Number: US-BAYER-200941495NA

PATIENT
  Sex: Female
  Weight: 65 kg

DRUGS (14)
  1. YASMIN [Suspect]
     Indication: MENORRHAGIA
     Dosage: UNK UNK, QD
     Dates: start: 20070201, end: 20070801
  2. CELEBREX [Concomitant]
     Dosage: 200 MG, UNK
     Route: 048
  3. TRAZODONE HCL [Concomitant]
     Indication: FIBROMYALGIA
     Dosage: 50 MG, UNK
     Dates: start: 20020101, end: 20070101
  4. CLARITIN [Concomitant]
     Indication: HYPERSENSITIVITY
     Dates: start: 20050101
  5. CLARINEX [Concomitant]
     Dosage: 5 MG, QD
     Route: 048
  6. ALLEGRA D 24 HOUR [Concomitant]
     Indication: SEASONAL ALLERGY
  7. DARVOCET [Concomitant]
  8. YAZ [Suspect]
     Indication: MENORRHAGIA
     Dosage: UNK UNK, QD
     Route: 048
     Dates: start: 20070801, end: 20070801
  9. CLARITIN [Concomitant]
     Indication: SEASONAL ALLERGY
  10. TRAZODONE HCL [Concomitant]
     Dates: start: 20070101
  11. PROTONIX [Concomitant]
     Dosage: 40 MG, UNK
     Route: 048
  12. SYNTHROID [Concomitant]
     Indication: AUTOIMMUNE THYROIDITIS
     Dosage: UNK UNK, QD
     Route: 048
     Dates: start: 19850101
  13. ALLEGRA D 24 HOUR [Concomitant]
     Indication: HYPERSENSITIVITY
     Dates: start: 20050101
  14. PHENERGAN [Concomitant]

REACTIONS (12)
  - BACK PAIN [None]
  - VENOUS INSUFFICIENCY [None]
  - PULMONARY EMBOLISM [None]
  - DEEP VEIN THROMBOSIS [None]
  - HEADACHE [None]
  - MOVEMENT DISORDER [None]
  - PAIN [None]
  - INJURY [None]
  - SLUGGISHNESS [None]
  - MUSCLE SPASMS [None]
  - SUPERFICIAL VEIN PROMINENCE [None]
  - PAIN IN EXTREMITY [None]
